FAERS Safety Report 15630351 (Version 4)
Quarter: 2022Q1

REPORT INFORMATION
  Report Type: Spontaneous
  Country: US (occurrence: US)
  Receive Date: 20181118
  Receipt Date: 20220316
  Transmission Date: 20220424
  Serious: Yes (Other)
  Sender: FDA-Public Use
  Company Number: US-ASTRAZENECA-2018SE50324

PATIENT
  Age: 65 Year
  Sex: Male
  Weight: 75 kg

DRUGS (66)
  1. PROTONIX [Suspect]
     Active Substance: PANTOPRAZOLE SODIUM
     Indication: Gastrooesophageal reflux disease
     Dosage: 40 MG, 1X/DAY
     Route: 065
     Dates: start: 201009
  2. NEXIUM [Suspect]
     Active Substance: ESOMEPRAZOLE MAGNESIUM
     Indication: Gastrooesophageal reflux disease
     Dosage: 20 OR 40 MG ONCE DAILY
     Route: 048
     Dates: start: 200606, end: 200708
  3. NEXIUM [Suspect]
     Active Substance: ESOMEPRAZOLE MAGNESIUM
     Dosage: 20 OR 40 MG ONCE DAILY
     Route: 048
     Dates: start: 201105
  4. NEXIUM [Suspect]
     Active Substance: ESOMEPRAZOLE MAGNESIUM
     Dosage: 20 OR 40 MG ONCE DAILY
     Route: 048
     Dates: start: 201201
  5. NEXIUM [Suspect]
     Active Substance: ESOMEPRAZOLE MAGNESIUM
     Dosage: 20 OR 40 MG ONCE DAILY
     Route: 048
     Dates: start: 201206, end: 201207
  6. NEXIUM [Suspect]
     Active Substance: ESOMEPRAZOLE MAGNESIUM
     Dosage: 20 OR 40 MG ONCE DAILY
     Route: 048
     Dates: start: 201210, end: 201211
  7. NEXIUM [Suspect]
     Active Substance: ESOMEPRAZOLE MAGNESIUM
     Dosage: 20 OR 40 MG ONCE DAILY
     Route: 048
     Dates: start: 201302, end: 201509
  8. NEXIUM [Suspect]
     Active Substance: ESOMEPRAZOLE MAGNESIUM
     Dosage: 20 OR 40 MG ONCE DAILY
     Route: 048
     Dates: start: 201603
  9. NEXIUM [Suspect]
     Active Substance: ESOMEPRAZOLE MAGNESIUM
     Dosage: 20 MG, UNK
     Route: 048
     Dates: start: 20060526, end: 2015
  10. NEXIUM [Suspect]
     Active Substance: ESOMEPRAZOLE MAGNESIUM
     Dosage: UNK
  11. NEXIUM 24HR [Suspect]
     Active Substance: ESOMEPRAZOLE MAGNESIUM
     Indication: Gastrooesophageal reflux disease
     Dosage: 40 MG, DAILY
     Route: 048
     Dates: start: 201607, end: 201612
  12. OMEPRAZOLE [Suspect]
     Active Substance: OMEPRAZOLE
     Indication: Gastrooesophageal reflux disease
     Dosage: 20 MG, 2X/DAY
     Route: 065
     Dates: start: 201309
  13. PANTOPRAZOLE [Suspect]
     Active Substance: PANTOPRAZOLE
     Indication: Gastrooesophageal reflux disease
     Dosage: 40 MG, 1X/DAY
     Dates: start: 201605
  14. PANTOPRAZOLE [Suspect]
     Active Substance: PANTOPRAZOLE
     Dosage: 40 MG, 1X/DAY
     Dates: start: 200701
  15. AMOXICILLIN [Concomitant]
     Active Substance: AMOXICILLIN
     Indication: Lower respiratory tract infection
     Dosage: UNK
     Route: 065
     Dates: start: 200707, end: 200708
  16. AMOXICILLIN [Concomitant]
     Active Substance: AMOXICILLIN
     Dosage: UNK
     Dates: start: 200801
  17. AMOXICILLIN [Concomitant]
     Active Substance: AMOXICILLIN
     Dosage: UNK
     Dates: start: 200805
  18. AMOXICILLIN [Concomitant]
     Active Substance: AMOXICILLIN
     Dosage: UNK
     Dates: start: 200809, end: 200810
  19. AMOXICILLIN [Concomitant]
     Active Substance: AMOXICILLIN
     Dosage: UNK
     Dates: start: 200902
  20. AMOXICILLIN [Concomitant]
     Active Substance: AMOXICILLIN
     Dosage: UNK
     Dates: start: 200904
  21. AMOXICILLIN [Concomitant]
     Active Substance: AMOXICILLIN
     Dosage: UNK
     Dates: start: 200906, end: 200910
  22. AMOXICILLIN [Concomitant]
     Active Substance: AMOXICILLIN
     Dosage: UNK
     Dates: start: 200912
  23. AMOXICILLIN [Concomitant]
     Active Substance: AMOXICILLIN
     Dosage: UNK
     Dates: start: 201003
  24. AMOXICILLIN [Concomitant]
     Active Substance: AMOXICILLIN
     Dosage: UNK
     Dates: start: 201104
  25. ATENOLOL [Concomitant]
     Active Substance: ATENOLOL
     Indication: Blood pressure abnormal
     Dosage: UNK
     Route: 065
     Dates: start: 201011, end: 201607
  26. ATORVASTATIN [Concomitant]
     Active Substance: ATORVASTATIN
     Indication: Blood cholesterol increased
     Dosage: UNK
     Route: 065
     Dates: start: 201212
  27. AZITHROMYCIN [Concomitant]
     Active Substance: AZITHROMYCIN
     Indication: Infection
     Dosage: UNK
     Route: 065
     Dates: start: 200806
  28. CARISOPRODOL [Concomitant]
     Active Substance: CARISOPRODOL
     Indication: Back pain
     Dosage: UNK
     Route: 065
     Dates: start: 200810, end: 201401
  29. CELEBREX [Concomitant]
     Active Substance: CELECOXIB
     Indication: Pain
     Dosage: UNK
     Route: 065
     Dates: start: 200909
  30. CEPHALEXIN [Concomitant]
     Active Substance: CEPHALEXIN
     Indication: Infection
     Dosage: UNK
     Route: 065
     Dates: start: 201312
  31. CIMETIDINE [Concomitant]
     Active Substance: CIMETIDINE
     Indication: Gastrooesophageal reflux disease
     Dosage: UNK
     Route: 065
     Dates: start: 200907, end: 200908
  32. CITALOPRAM [Concomitant]
     Active Substance: CITALOPRAM HYDROBROMIDE
     Indication: Depression
     Dosage: UNK
     Route: 065
     Dates: start: 201209, end: 201312
  33. CITALOPRAM [Concomitant]
     Active Substance: CITALOPRAM HYDROBROMIDE
     Dosage: UNK
     Dates: start: 201512
  34. CLINDAMYCIN [Concomitant]
     Active Substance: CLINDAMYCIN
     Indication: Infection
     Dosage: UNK
     Route: 065
     Dates: start: 201410
  35. DOXAZOSIN [Concomitant]
     Active Substance: DOXAZOSIN MESYLATE
     Indication: Prostatic disorder
     Dosage: UNK
     Route: 065
     Dates: start: 200909, end: 201102
  36. ERYTHROMYCIN [Concomitant]
     Active Substance: ERYTHROMYCIN
     Indication: Infection
     Dosage: UNK
     Route: 065
     Dates: start: 201008
  37. ERYTHROMYCIN [Concomitant]
     Active Substance: ERYTHROMYCIN
     Dosage: UNK
     Dates: start: 201010
  38. ERYTHROMYCIN [Concomitant]
     Active Substance: ERYTHROMYCIN
     Dosage: UNK
     Dates: start: 201101
  39. GLYBURIDE [Concomitant]
     Active Substance: GLYBURIDE
     Indication: Diabetes mellitus
     Dosage: UNK
     Route: 065
     Dates: start: 200910, end: 200911
  40. GLYBURIDE [Concomitant]
     Active Substance: GLYBURIDE
     Dosage: UNK
     Dates: start: 201009
  41. GLYBURIDE [Concomitant]
     Active Substance: GLYBURIDE
     Dosage: UNK
     Dates: start: 201102, end: 201106
  42. GLYBURIDE [Concomitant]
     Active Substance: GLYBURIDE
     Dosage: UNK
     Dates: start: 201111, end: 201209
  43. GLYBURIDE [Concomitant]
     Active Substance: GLYBURIDE
     Dosage: UNK
     Dates: start: 201301, end: 201309
  44. HUMALOG [Concomitant]
     Active Substance: INSULIN LISPRO
     Indication: Diabetes mellitus
     Dosage: UNK
     Route: 065
     Dates: start: 201310, end: 201401
  45. HYDROCHLOROTHIAZIDE [Concomitant]
     Active Substance: HYDROCHLOROTHIAZIDE
     Indication: Oedema
     Dosage: UNK
     Route: 065
     Dates: start: 201203
  46. INDOMETHACIN [Concomitant]
     Active Substance: INDOMETHACIN
     Indication: Analgesic therapy
     Dosage: UNK
     Route: 065
     Dates: start: 200803
  47. KETOROLAC [Concomitant]
     Active Substance: KETOROLAC TROMETHAMINE
     Indication: Analgesic therapy
     Dosage: UNK
     Route: 065
     Dates: start: 201007
  48. LANTUS [Concomitant]
     Active Substance: INSULIN GLARGINE
     Indication: Diabetes mellitus
     Dosage: UNK
     Route: 065
     Dates: start: 201309, end: 201606
  49. LISINOPRIL [Concomitant]
     Active Substance: LISINOPRIL
     Indication: Blood pressure abnormal
     Dosage: UNK
     Route: 065
     Dates: start: 201209
  50. METFORMIN [Concomitant]
     Active Substance: METFORMIN HYDROCHLORIDE
     Indication: Diabetes mellitus
     Dosage: UNK
     Route: 065
     Dates: start: 200607, end: 200612
  51. METFORMIN [Concomitant]
     Active Substance: METFORMIN HYDROCHLORIDE
     Dosage: UNK
     Dates: start: 200706
  52. METFORMIN [Concomitant]
     Active Substance: METFORMIN HYDROCHLORIDE
     Dosage: UNK
     Dates: start: 200811
  53. METFORMIN [Concomitant]
     Active Substance: METFORMIN HYDROCHLORIDE
     Dosage: UNK
     Dates: start: 200910
  54. METFORMIN [Concomitant]
     Active Substance: METFORMIN HYDROCHLORIDE
     Dosage: UNK
     Dates: start: 201009, end: 201101
  55. METFORMIN [Concomitant]
     Active Substance: METFORMIN HYDROCHLORIDE
     Dosage: UNK
     Dates: start: 201106, end: 201108
  56. METFORMIN [Concomitant]
     Active Substance: METFORMIN HYDROCHLORIDE
     Dosage: UNK
     Dates: start: 201201
  57. METFORMIN [Concomitant]
     Active Substance: METFORMIN HYDROCHLORIDE
     Dosage: UNK
     Dates: start: 201207
  58. METFORMIN [Concomitant]
     Active Substance: METFORMIN HYDROCHLORIDE
     Dosage: UNK
     Dates: start: 201301, end: 201312
  59. METFORMIN [Concomitant]
     Active Substance: METFORMIN HYDROCHLORIDE
     Dosage: UNK
     Dates: start: 201409, end: 201504
  60. METFORMIN [Concomitant]
     Active Substance: METFORMIN HYDROCHLORIDE
     Dosage: UNK
     Dates: start: 201603
  61. MORPHINE SULFATE [Concomitant]
     Active Substance: MORPHINE SULFATE
     Indication: Analgesic therapy
     Dosage: UNK
     Route: 065
     Dates: start: 201209, end: 201312
  62. NOVOLOG [Concomitant]
     Active Substance: INSULIN ASPART
     Indication: Diabetes mellitus
     Dosage: UNK
     Route: 065
     Dates: start: 201404
  63. RANITIDINE [Concomitant]
     Active Substance: RANITIDINE
     Indication: Gastrooesophageal reflux disease
     Dosage: UNK
     Route: 065
     Dates: start: 200906
  64. SERTRALINE [Concomitant]
     Active Substance: SERTRALINE HYDROCHLORIDE
     Indication: Depression
     Dosage: UNK
     Route: 065
     Dates: start: 201209, end: 201302
  65. SULFAMETHOXAZOLE\TRIMETHOPRIM [Concomitant]
     Active Substance: SULFAMETHOXAZOLE\TRIMETHOPRIM
     Indication: Infection
     Dosage: UNK
     Route: 065
     Dates: start: 201312
  66. ZOLPIDEM [Concomitant]
     Active Substance: ZOLPIDEM TARTRATE
     Indication: Insomnia
     Dosage: UNK
     Route: 065
     Dates: start: 201005, end: 201007

REACTIONS (1)
  - Chronic kidney disease [Not Recovered/Not Resolved]

NARRATIVE: CASE EVENT DATE: 20171101
